FAERS Safety Report 5662419-0 (Version None)
Quarter: 2008Q1

REPORT INFORMATION
  Report Type: 
  Country: None (occurrence: None)
  Receive Date: 20080313
  Receipt Date: 20080304
  Transmission Date: 20080703
  Serious: No
  Sender: FDA-Public Use
  Company Number: US-JNJFOC-20080301327

PATIENT
  Age: 30 Year
  Sex: Male

DRUGS (1)
  1. INVEGA [Suspect]
     Indication: SCHIZOPHRENIA
     Route: 048

REACTIONS (1)
  - ERYTHEMA [None]
